FAERS Safety Report 5950264-8 (Version None)
Quarter: 2008Q4

REPORT INFORMATION
  Report Type: 
  Country: None (occurrence: None)
  Receive Date: 20081022
  Receipt Date: 20080626
  Transmission Date: 20090506
  Serious: No
  Sender: FDA-Public Use
  Company Number: ALL1-2008-01891

PATIENT
  Age: 17 Year
  Sex: Male
  Weight: 72.6 kg

DRUGS (2)
  1. VYVANSE [Suspect]
     Indication: ATTENTION DEFICIT/HYPERACTIVITY DISORDER
     Dosage: 1X/DAY:QD, ORAL
     Route: 048
     Dates: start: 20071001, end: 20080605
  2. BACTRIM [Concomitant]

REACTIONS (2)
  - FEELING ABNORMAL [None]
  - OFF LABEL USE [None]
